FAERS Safety Report 7149259-0 (Version None)
Quarter: 2010Q4

REPORT INFORMATION
  Report Type: 
  Country: None (occurrence: None)
  Receive Date: 20101209
  Receipt Date: 20101126
  Transmission Date: 20110411
  Serious: Yes (Other)
  Sender: FDA-Public Use
  Company Number: GXKR2010JP13468

PATIENT
  Age: 37 Year
  Sex: Male

DRUGS (13)
  1. PARACETAMOL (NGX) [Suspect]
     Indication: OROPHARYNGEAL PAIN
  2. CARBAMAZEPINE [Suspect]
     Indication: DEPRESSION
  3. FLUNITRAZEPAM [Concomitant]
     Indication: DEPRESSION
  4. QUETIAPINE FUMARATE [Concomitant]
     Indication: DEPRESSION
  5. RISPERIDONE [Concomitant]
     Indication: DEPRESSION
  6. LEVOMEPROMAZINE [Concomitant]
     Indication: DEPRESSION
  7. BIPERIDEN HYDROCHLORIDE TAB [Concomitant]
     Indication: DEPRESSION
  8. LOXOPROFEN SODIUM [Concomitant]
     Indication: OROPHARYNGEAL PAIN
  9. MIGRENIN [Concomitant]
     Indication: OROPHARYNGEAL PAIN
  10. CIPROFLOXACIN HYDROCHLORIDE [Concomitant]
     Indication: OROPHARYNGEAL PAIN
  11. SERRAPEPTASE [Concomitant]
     Indication: OROPHARYNGEAL PAIN
  12. DIMEMORFAN PHOSPHATE [Concomitant]
     Indication: OROPHARYNGEAL PAIN
  13. DICLOFENAC [Concomitant]
     Indication: OROPHARYNGEAL PAIN

REACTIONS (3)
  - ERYTHEMA [None]
  - SKIN LESION [None]
  - TOXIC EPIDERMAL NECROLYSIS [None]
